FAERS Safety Report 9027934 (Version 1)
Quarter: 2013Q1

REPORT INFORMATION
  Report Type: Spontaneous
  Country: US (occurrence: None)
  Receive Date: 20130114
  Receipt Date: 20130114
  Transmission Date: 20140127
  Serious: Yes (Other)
  Sender: FDA-Public Use
  Company Number: None

PATIENT
  Age: 58 Year
  Sex: Female
  Weight: 65.5 kg

DRUGS (2)
  1. LEVOFLOXACIN [Suspect]
     Indication: URINARY TRACT DISORDER
     Dates: start: 20121105, end: 20121112
  2. LEVOFLOXACIN [Suspect]
     Indication: CYSTITIS
     Dates: start: 20121105, end: 20121112

REACTIONS (4)
  - Arthralgia [None]
  - Abasia [None]
  - Myalgia [None]
  - Herpes zoster [None]
